FAERS Safety Report 8295150-6 (Version None)
Quarter: 2012Q2

REPORT INFORMATION
  Report Type: 
  Country: None (occurrence: None)
  Receive Date: 20120418
  Receipt Date: 20120406
  Transmission Date: 20120825
  Serious: Yes (Hospitalization)
  Sender: FDA-Public Use
  Company Number: US-PFIZER INC-2012051577

PATIENT
  Age: 56 Year
  Sex: Male
  Weight: 70.2 kg

DRUGS (7)
  1. NIASPAN [Concomitant]
     Dosage: 500 MG, 1X/DAY
     Dates: start: 20110624
  2. VELCADE [Suspect]
     Indication: FOLLICLE CENTRE LYMPHOMA, FOLLICULAR GRADE I, II, III
     Dosage: 1.6 MG/M2, WEEKLY
     Route: 042
     Dates: start: 20111202, end: 20120217
  3. CRESTOR [Concomitant]
     Dosage: 5 MG, 1X/DAY
     Dates: start: 20110624
  4. TEMSIROLIMUS [Suspect]
     Indication: FOLLICLE CENTRE LYMPHOMA, FOLLICULAR GRADE I, II, III
     Dosage: 25 MG, WEEKLY
     Route: 042
     Dates: start: 20111202, end: 20120217
  5. CIPROFLOXACIN HCL [Concomitant]
     Dosage: 500 MG, 2X/DAY
     Dates: start: 20110216
  6. ZOVIRAX [Concomitant]
     Dosage: 800 MG, 2X/DAY
     Dates: start: 20111223
  7. NEUPOGEN [Concomitant]
     Dosage: 480 UG, AS NEEDED
     Dates: start: 20111226

REACTIONS (1)
  - VIITH NERVE PARALYSIS [None]
